FAERS Safety Report 25682077 (Version 1)
Quarter: 2025Q3

REPORT INFORMATION
  Report Type: Spontaneous
  Country: US (occurrence: US)
  Receive Date: 20250814
  Receipt Date: 20250814
  Transmission Date: 20251020
  Serious: Yes (Other)
  Sender: CHEPLAPHARM
  Company Number: None

PATIENT
  Age: 23 Year
  Sex: Male

DRUGS (23)
  1. GANCICLOVIR [Suspect]
     Active Substance: GANCICLOVIR
     Indication: Immunosuppression
     Dosage: 10 MG/KG/DAY?DAILY DOSE: 10 MILLIGRAM/KG
     Route: 042
  2. GANCICLOVIR [Suspect]
     Active Substance: GANCICLOVIR
     Indication: Antiviral prophylaxis
     Dosage: 10 MG/KG/DAY?DAILY DOSE: 10 MILLIGRAM/KG
     Route: 042
  3. VALGANCICLOVIR [Suspect]
     Active Substance: VALGANCICLOVIR
     Indication: Cytomegalovirus infection
     Dosage: 900 MG, DAILY?DAILY DOSE: 900 MILLIGRAM
     Route: 048
  4. METHYLPREDNISOLONE [Suspect]
     Active Substance: METHYLPREDNISOLONE
     Indication: Transplant rejection
  5. METHYLPREDNISOLONE [Suspect]
     Active Substance: METHYLPREDNISOLONE
     Indication: Immunosuppression
  6. METHYLPREDNISOLONE [Suspect]
     Active Substance: METHYLPREDNISOLONE
     Indication: Transplant rejection
  7. METHYLPREDNISOLONE [Suspect]
     Active Substance: METHYLPREDNISOLONE
     Indication: Immunosuppression
  8. METHYLPREDNISOLONE [Suspect]
     Active Substance: METHYLPREDNISOLONE
     Indication: Transplant rejection
  9. METHYLPREDNISOLONE [Suspect]
     Active Substance: METHYLPREDNISOLONE
     Indication: Immunosuppression
  10. MYCOPHENOLATE MOFETIL [Suspect]
     Active Substance: MYCOPHENOLATE MOFETIL
     Indication: Limb transplantation
  11. MYCOPHENOLATE MOFETIL [Suspect]
     Active Substance: MYCOPHENOLATE MOFETIL
     Indication: Immunosuppression
  12. MYCOPHENOLATE MOFETIL [Suspect]
     Active Substance: MYCOPHENOLATE MOFETIL
     Indication: Limb transplantation
  13. MYCOPHENOLATE MOFETIL [Suspect]
     Active Substance: MYCOPHENOLATE MOFETIL
     Indication: Immunosuppression
  14. ALEMTUZUMAB [Suspect]
     Active Substance: ALEMTUZUMAB
     Indication: Immunosuppression
  15. PREDNISOLONE [Suspect]
     Active Substance: PREDNISOLONE
     Indication: Immunosuppression
     Dosage: DAILY DOSE: 20 MILLIGRAM
  16. PREDNISOLONE [Suspect]
     Active Substance: PREDNISOLONE
     Indication: Limb transplantation
     Dosage: DAILY DOSE: 20 MILLIGRAM
  17. PREDNISOLONE [Suspect]
     Active Substance: PREDNISOLONE
     Indication: Immunosuppression
     Dosage: MAINTENANCE DOSE?DAILY DOSE: 5 MILLIGRAM
  18. PREDNISOLONE [Suspect]
     Active Substance: PREDNISOLONE
     Indication: Limb transplantation
     Dosage: MAINTENANCE DOSE?DAILY DOSE: 5 MILLIGRAM
  19. TACROLIMUS [Suspect]
     Active Substance: TACROLIMUS
  20. TACROLIMUS [Suspect]
     Active Substance: TACROLIMUS
  21. TACROLIMUS [Suspect]
     Active Substance: TACROLIMUS
  22. TACROLIMUS [Suspect]
     Active Substance: TACROLIMUS
     Route: 061
  23. AMOXICILLIN\CLAVULANIC ACID [Concomitant]
     Active Substance: AMOXICILLIN\CLAVULANIC ACID
     Indication: Antibiotic prophylaxis

REACTIONS (4)
  - Transplant rejection [Recovered/Resolved]
  - Hypertension [Recovered/Resolved]
  - Drug ineffective [Unknown]
  - Off label use [Unknown]
